FAERS Safety Report 6639280-0 (Version None)
Quarter: 2010Q1

REPORT INFORMATION
  Report Type: 
  Country: None (occurrence: None)
  Receive Date: 20100315
  Receipt Date: 20100303
  Transmission Date: 20100710
  Serious: Yes (Disabling, Other)
  Sender: FDA-Public Use
  Company Number: 2009SP043648

PATIENT
  Age: 33 Year
  Sex: Male

DRUGS (1)
  1. PROVENTIL-HFA [Suspect]
     Indication: ASTHMA
     Dosage: 2 DF;PRN;RESP
     Route: 055
     Dates: start: 20090101, end: 20090101

REACTIONS (4)
  - DEPRESSION [None]
  - DISSOCIATION [None]
  - HEADACHE [None]
  - SUICIDAL IDEATION [None]
